FAERS Safety Report 21956441 (Version 3)
Quarter: 2023Q2

REPORT INFORMATION
  Report Type: Spontaneous
  Country: AE (occurrence: AE)
  Receive Date: 20230206
  Receipt Date: 20230517
  Transmission Date: 20230722
  Serious: Yes (Death)
  Sender: FDA-Public Use
  Company Number: AE-002147023-NVSC2023AE025828

PATIENT
  Age: 2 Year
  Sex: Female
  Weight: 8.1 kg

DRUGS (2)
  1. ZOLGENSMA [Suspect]
     Active Substance: ONASEMNOGENE ABEPARVOVEC-XIOI
     Indication: Spinal muscular atrophy
     Dosage: 46.8 ML, ONCE/SINGLE
     Route: 042
     Dates: start: 20211209
  2. UNSPECIFIED INGREDIENT [Concomitant]
     Active Substance: UNSPECIFIED INGREDIENT
     Indication: Product used for unknown indication
     Dosage: UNK
     Route: 065
     Dates: start: 20211208, end: 20220227

REACTIONS (2)
  - Cardiac arrest [Fatal]
  - COVID-19 [Fatal]

NARRATIVE: CASE EVENT DATE: 20230203
